FAERS Safety Report 4397584-9 (Version None)
Quarter: 2004Q3

REPORT INFORMATION
  Report Type: 
  Country: None (occurrence: None)
  Receive Date: 20040712
  Receipt Date: 20040628
  Transmission Date: 20050211
  Serious: Yes (Death)
  Sender: FDA-Public Use
  Company Number: 0410013

PATIENT
  Age: 1 Year
  Sex: Male

DRUGS (1)
  1. NITISINONE/COMPASS.USE [Suspect]
     Indication: AMINO ACID METABOLISM DISORDER
     Dates: start: 20031009, end: 20040614

REACTIONS (2)
  - HAEMORRHAGIC DIATHESIS [None]
  - HEPATIC FAILURE [None]
